FAERS Safety Report 8387147-2 (Version None)
Quarter: 2012Q2

REPORT INFORMATION
  Report Type: 
  Country: None (occurrence: None)
  Receive Date: 20120525
  Receipt Date: 20120106
  Transmission Date: 20120825
  Serious: Yes (Other)
  Sender: FDA-Public Use
  Company Number: US-ROCHE-1006251

PATIENT
  Sex: Male
  Weight: 84.444 kg

DRUGS (5)
  1. ACLOVATE [Concomitant]
  2. PROMETHAZINE [Concomitant]
  3. ACCUTANE [Suspect]
     Dates: start: 20021230, end: 20030501
  4. SULFAMETHOXAZOL [Concomitant]
  5. ACCUTANE [Suspect]
     Indication: ACNE
     Route: 048
     Dates: start: 20001101, end: 20010201

REACTIONS (6)
  - EPISTAXIS [None]
  - CROHN'S DISEASE [None]
  - ANAL FISTULA [None]
  - INFLAMMATORY BOWEL DISEASE [None]
  - EMOTIONAL DISTRESS [None]
  - HEADACHE [None]
